FAERS Safety Report 5826879-4 (Version None)
Quarter: 2008Q3

REPORT INFORMATION
  Report Type: 
  Country: None (occurrence: None)
  Receive Date: 20080729
  Receipt Date: 20080729
  Transmission Date: 20090109
  Serious: Yes (Hospitalization)
  Sender: FDA-Public Use
  Company Number: None

PATIENT
  Sex: Female
  Weight: 71.8 kg

DRUGS (2)
  1. CISPLATIN [Suspect]
  2. ERBITUX [Suspect]
     Dosage: 455 MG

REACTIONS (6)
  - COLONIC STENOSIS [None]
  - DIARRHOEA [None]
  - DRUG INEFFECTIVE [None]
  - ELECTROLYTE IMBALANCE [None]
  - NO THERAPEUTIC RESPONSE [None]
  - WEIGHT DECREASED [None]
